FAERS Safety Report 7600522-6 (Version None)
Quarter: 2011Q2

REPORT INFORMATION
  Report Type: 
  Country: None (occurrence: None)
  Receive Date: 20110627
  Receipt Date: 20100714
  Transmission Date: 20111010
  Serious: Yes (Hospitalization)
  Sender: FDA-Public Use
  Company Number: OMPQ-PR-1008S-0682

PATIENT
  Age: 60 Year
  Sex: Male
  Weight: 108 kg

DRUGS (3)
  1. IOVERSOL (OPTIRAY) (IOVERSOL) [Suspect]
     Indication: AORTIC ANEURYSM
     Dosage: 125 ML, SINGLE DOSE ONCE
  2. VISIPAQUE [Suspect]
     Indication: AORTIC ANEURYSM
     Dosage: 360 ML, SINGLE DOSE, INTRA-ARTERIAL ONCE
     Route: 013
  3. OMNIPAQUE 70 [Suspect]
     Indication: AORTIC ANEURYSM
     Dosage: 100 ML, SINGLE DOSE ONCE

REACTIONS (4)
  - RASH PAPULAR [None]
  - HYPERSENSITIVITY [None]
  - SKIN ULCER [None]
  - BLOOD CREATININE INCREASED [None]
